FAERS Safety Report 5917310-9 (Version None)
Quarter: 2008Q4

REPORT INFORMATION
  Report Type: 
  Country: None (occurrence: None)
  Receive Date: 20081014
  Receipt Date: 20081003
  Transmission Date: 20090506
  Serious: Yes (Hospitalization)
  Sender: FDA-Public Use
  Company Number: US-ELI_LILLY_AND_COMPANY-US200810001652

PATIENT
  Sex: Female

DRUGS (4)
  1. FORTEO [Suspect]
     Indication: OSTEOPOROSIS
     Dates: start: 20070101, end: 20071201
  2. FORTEO [Suspect]
     Dates: start: 20080701
  3. OXYGEN [Concomitant]
     Indication: OESOPHAGEAL SPASM
     Dosage: UNKNOWN
  4. OXYGEN [Concomitant]
     Dosage: 2 LITER, 24 HOURS A DAY

REACTIONS (7)
  - DIZZINESS [None]
  - DYSPNOEA [None]
  - GAIT DISTURBANCE [None]
  - HEAD INJURY [None]
  - OESOPHAGEAL SPASM [None]
  - OXYGEN SATURATION DECREASED [None]
  - VISUAL IMPAIRMENT [None]
